FAERS Safety Report 10535377 (Version 1)
Quarter: 2014Q4

REPORT INFORMATION
  Report Type: Spontaneous
  Country: JP (occurrence: JP)
  Receive Date: 20141022
  Receipt Date: 20141022
  Transmission Date: 20150529
  Serious: Yes (Death, Life-Threatening, Other)
  Sender: FDA-Public Use
  Company Number: JP-GLAXOSMITHKLINE-JP2014JPN004853

PATIENT
  Age: 82 Year
  Sex: Female

DRUGS (3)
  1. ARZERRA [Suspect]
     Active Substance: OFATUMUMAB
     Dosage: 2000 ML, QD
     Route: 042
     Dates: start: 20140926, end: 20140926
  2. ARZERRA [Suspect]
     Active Substance: OFATUMUMAB
     Dosage: UNK
  3. ARZERRA [Suspect]
     Active Substance: OFATUMUMAB
     Indication: CHRONIC LYMPHOCYTIC LEUKAEMIA
     Dosage: 300 ML, QD
     Route: 042
     Dates: start: 20140919, end: 20140919

REACTIONS (2)
  - Sepsis [Fatal]
  - C-reactive protein increased [Unknown]

NARRATIVE: CASE EVENT DATE: 20140930
